FAERS Safety Report 5600266-6 (Version None)
Quarter: 2008Q1

REPORT INFORMATION
  Report Type: 
  Country: None (occurrence: None)
  Receive Date: 20080123
  Receipt Date: 20080109
  Transmission Date: 20080703
  Serious: Yes (Life-Threatening, Hospitalization, Other)
  Sender: FDA-Public Use
  Company Number: DE-BRISTOL-MYERS SQUIBB COMPANY-14048813

PATIENT
  Age: 22 Year
  Sex: Male

DRUGS (8)
  1. ENDOXAN [Suspect]
     Indication: HODGKIN'S DISEASE
     Route: 065
     Dates: start: 20071205, end: 20071205
  2. ETOPOSIDE [Suspect]
     Indication: HODGKIN'S DISEASE
     Route: 065
     Dates: start: 20071205, end: 20071207
  3. VINCRISTINE SULFATE [Suspect]
     Indication: HODGKIN'S DISEASE
     Route: 065
     Dates: start: 20071212, end: 20071212
  4. DOXORUBICIN HCL [Suspect]
     Indication: HODGKIN'S DISEASE
     Route: 065
     Dates: start: 20071205, end: 20071205
  5. BLEOMYCIN [Suspect]
     Indication: HODGKIN'S DISEASE
     Dates: start: 20071212, end: 20071212
  6. PROCARBAZINE [Suspect]
     Indication: HODGKIN'S DISEASE
     Route: 065
     Dates: start: 20071205, end: 20071211
  7. NEUPOGEN [Concomitant]
     Dates: start: 20071212, end: 20071222
  8. DECORTIN [Concomitant]
     Dates: start: 20071205, end: 20071219

REACTIONS (13)
  - BACTERIAL SEPSIS [None]
  - CHILLS [None]
  - CONVULSION [None]
  - DIARRHOEA [None]
  - FALL [None]
  - MYOCLONUS [None]
  - PANCYTOPENIA [None]
  - PYREXIA [None]
  - RENAL FAILURE ACUTE [None]
  - RESPIRATORY FAILURE [None]
  - SEPTIC SHOCK [None]
  - SUBARACHNOID HAEMORRHAGE [None]
  - VOMITING [None]
